FAERS Safety Report 16720320 (Version 2)
Quarter: 2019Q3

REPORT INFORMATION
  Report Type: Spontaneous
  Country: SK (occurrence: SK)
  Receive Date: 20190820
  Receipt Date: 20190903
  Transmission Date: 20191005
  Serious: Yes (Other)
  Sender: FDA-Public Use
  Company Number: SK-MYLANLABS-2019M1076680

PATIENT
  Age: 82 Year
  Sex: Male

DRUGS (5)
  1. GEMCITABINE. [Suspect]
     Active Substance: GEMCITABINE
     Indication: PANCREATIC CARCINOMA
     Dosage: UNK
     Route: 065
     Dates: start: 201608, end: 201705
  2. VITAMIN C [Suspect]
     Active Substance: ASCORBIC ACID
     Indication: PANCREATIC CARCINOMA
     Dosage: UNK (7.5G/50ML)
     Route: 041
     Dates: start: 201608, end: 201710
  3. NORMAL SALINE [Concomitant]
     Active Substance: SODIUM CHLORIDE
     Indication: PRODUCT USED FOR UNKNOWN INDICATION
     Dosage: UNK (30-37.5 G IN 1500 ML, TWICE WEEKLY )
     Route: 065
     Dates: start: 201608, end: 201710
  4. ABRAXANE [Suspect]
     Active Substance: PACLITAXEL
     Indication: PANCREATIC CARCINOMA
     Dosage: UNK
     Route: 065
     Dates: start: 201608, end: 201705
  5. GEMCITABINE. [Suspect]
     Active Substance: GEMCITABINE
     Indication: PANCREATIC CARCINOMA METASTATIC
     Dosage: UNK
     Route: 065

REACTIONS (6)
  - Pancreatic carcinoma [Not Recovered/Not Resolved]
  - Malignant neoplasm progression [Not Recovered/Not Resolved]
  - Metastases to liver [Unknown]
  - Fatigue [Unknown]
  - Metastases to spleen [Unknown]
  - Pyrexia [Unknown]

NARRATIVE: CASE EVENT DATE: 20161018
